FAERS Safety Report 14716456 (Version 3)
Quarter: 2018Q2

REPORT INFORMATION
  Report Type: Spontaneous
  Country: US (occurrence: US)
  Receive Date: 20180404
  Receipt Date: 20180521
  Transmission Date: 20180711
  Serious: Yes (Other)
  Sender: FDA-Public Use
  Company Number: US-CELGENEUS-USA-20180311010

PATIENT
  Age: 84 Year
  Sex: Female
  Weight: 60.84 kg

DRUGS (2)
  1. REVLIMID [Suspect]
     Active Substance: LENALIDOMIDE
     Indication: 5Q MINUS SYNDROME
  2. REVLIMID [Suspect]
     Active Substance: LENALIDOMIDE
     Indication: REFRACTORY CYTOPENIA WITH MULTILINEAGE DYSPLASIA
     Dosage: 5 MILLIGRAM
     Route: 048
     Dates: start: 20180214

REACTIONS (3)
  - Haemoglobin decreased [Unknown]
  - Nasopharyngitis [Not Recovered/Not Resolved]
  - Platelet count decreased [Unknown]

NARRATIVE: CASE EVENT DATE: 2018
